FAERS Safety Report 7447718-4 (Version None)
Quarter: 2011Q2

REPORT INFORMATION
  Report Type: 
  Country: None (occurrence: None)
  Receive Date: 20110429
  Receipt Date: 20101004
  Transmission Date: 20111010
  Serious: No
  Sender: FDA-Public Use
  Company Number: US-ASTRAZENECA-2010SE39134

PATIENT
  Age: 877 Month
  Sex: Male
  Weight: 83.9 kg

DRUGS (5)
  1. AGGRENOX [Concomitant]
  2. SPIRIVA [Concomitant]
     Indication: CHRONIC OBSTRUCTIVE PULMONARY DISEASE
  3. FORADIL [Concomitant]
     Indication: CHRONIC OBSTRUCTIVE PULMONARY DISEASE
  4. COZAAR [Concomitant]
  5. NEXIUM [Suspect]
     Indication: DYSPEPSIA
     Route: 048
     Dates: start: 20100811, end: 20100814

REACTIONS (4)
  - MALAISE [None]
  - DYSPNOEA [None]
  - THROAT TIGHTNESS [None]
  - DRY THROAT [None]
